FAERS Safety Report 24233826 (Version 2)
Quarter: 2025Q1

REPORT INFORMATION
  Report Type: Spontaneous
  Country: US (occurrence: US)
  Receive Date: 20240821
  Receipt Date: 20250129
  Transmission Date: 20250408
  Serious: Yes (Hospitalization, Other)
  Sender: SANOFI AVENTIS
  Company Number: US-SA-SAC20240817000868

PATIENT
  Age: 61 Year
  Sex: Male
  Weight: 67.13 kg

DRUGS (1)
  1. REZUROCK [Suspect]
     Active Substance: BELUMOSUDIL
     Indication: Graft versus host disease
     Dosage: 200 MG, QD
     Route: 048

REACTIONS (2)
  - Cardiac therapeutic procedure [Recovering/Resolving]
  - Thoracic cavity drainage [Recovering/Resolving]
